FAERS Safety Report 13135039 (Version 1)
Quarter: 2017Q1

REPORT INFORMATION
  Report Type: Spontaneous
  Country: JP (occurrence: JP)
  Receive Date: 20170120
  Receipt Date: 20170120
  Transmission Date: 20170428
  Serious: Yes (Hospitalization)
  Sender: FDA-Public Use
  Company Number: JP-PFIZER INC-2016587322

PATIENT
  Age: 77 Year
  Sex: Female

DRUGS (2)
  1. METHOTREXATE SODIUM. [Suspect]
     Active Substance: METHOTREXATE SODIUM
     Dosage: 4 MG, 2X/WEEK
     Route: 048
     Dates: start: 2016, end: 2016
  2. RHEUMATREX [Suspect]
     Active Substance: METHOTREXATE SODIUM
     Dosage: 4 MG, 2X/WEEK
     Route: 048
     Dates: start: 2007

REACTIONS (3)
  - Medication error [Unknown]
  - Disseminated intravascular coagulation [Unknown]
  - Subcutaneous haematoma [Unknown]
